FAERS Safety Report 7109773-0 (Version None)
Quarter: 2010Q4

REPORT INFORMATION
  Report Type: 
  Country: None (occurrence: None)
  Receive Date: 20101118
  Receipt Date: 20101111
  Transmission Date: 20110411
  Serious: Yes (Death, Hospitalization)
  Sender: FDA-Public Use
  Company Number: US-ELI_LILLY_AND_COMPANY-US201010006223

PATIENT
  Sex: Female
  Weight: 43.537 kg

DRUGS (12)
  1. PEMETREXED [Suspect]
     Indication: NON-SMALL CELL LUNG CANCER STAGE IV
     Dosage: 500 MG/M2, DAY 1 EVERY 21 DAYS
     Route: 042
     Dates: start: 20100903, end: 20100924
  2. CARBOPLATIN [Suspect]
     Indication: NON-SMALL CELL LUNG CANCER STAGE IV
     Dosage: 6 D/F, DAY 1 EVERY 21 DAYS
     Route: 042
     Dates: start: 20100903, end: 20100924
  3. BEVACIZUMAB [Suspect]
     Indication: NON-SMALL CELL LUNG CANCER STAGE IV
     Dosage: 15 MG/KG, DAY 1 EVERY 21 DAYS
     Route: 042
     Dates: start: 20100903, end: 20100924
  4. FOLIC ACID [Concomitant]
     Indication: PREMEDICATION
  5. DEXAMETHASONE [Concomitant]
     Indication: PREMEDICATION
  6. ZOMETA [Concomitant]
     Indication: METASTASES TO BONE
  7. NYSTATIN [Concomitant]
     Indication: MUCOSAL INFLAMMATION
  8. ADVAIR DISKUS 100/50 [Concomitant]
     Indication: ASTHMA
  9. ZOCOR [Concomitant]
     Indication: HYPERLIPIDAEMIA
  10. PREMARIN [Concomitant]
     Indication: HORMONE REPLACEMENT THERAPY
  11. ZOLOFT [Concomitant]
     Indication: DEPRESSION
  12. MEGACE [Concomitant]
     Indication: DECREASED APPETITE

REACTIONS (2)
  - DEATH [None]
  - PNEUMOTHORAX [None]
